FAERS Safety Report 17134401 (Version 2)
Quarter: 2019Q4

REPORT INFORMATION
  Report Type: Spontaneous
  Country: PT (occurrence: PT)
  Receive Date: 20191210
  Receipt Date: 20191219
  Transmission Date: 20200122
  Serious: Yes (Hospitalization, Other)
  Sender: FDA-Public Use
  Company Number: PT-MYLANLABS-2019M1120053

PATIENT
  Age: 80 Year
  Sex: Male
  Weight: 60 kg

DRUGS (12)
  1. ROCURONIUM [Interacting]
     Active Substance: ROCURONIUM BROMIDE
     Indication: INDUCTION OF ANAESTHESIA
     Dosage: 0.83 MG/KG
     Route: 042
  2. METAMIZOLE [Interacting]
     Active Substance: METAMIZOLE
     Indication: ANALGESIC THERAPY
     Dosage: 2000 MILLIGRAM
  3. MIDAZOLAM [Interacting]
     Active Substance: MIDAZOLAM HYDROCHLORIDE
     Indication: ANAESTHETIC PREMEDICATION
     Dosage: 3 MILLIGRAM
     Route: 065
  4. FENTANYL. [Suspect]
     Active Substance: FENTANYL
     Indication: GENERAL ANAESTHESIA
     Dosage: 150 MICROGRAM
  5. PARECOXIB [Interacting]
     Active Substance: PARECOXIB
     Indication: ANALGESIC THERAPY
     Dosage: 40 MILLIGRAM
  6. PARACETAMOL [Interacting]
     Active Substance: ACETAMINOPHEN
     Indication: ANALGESIC THERAPY
     Dosage: 1000 MILLIGRAM
  7. SEVOFLURANE. [Interacting]
     Active Substance: SEVOFLURANE
     Indication: MAINTENANCE OF ANAESTHESIA
     Dosage: 1.0% - 1.2% IN A MIXTURE OF 45% O2 AND AIR
  8. ROCURONIUM [Interacting]
     Active Substance: ROCURONIUM BROMIDE
     Indication: GENERAL ANAESTHESIA
     Dosage: 0.33 MG/KG
  9. PROPOFOL. [Interacting]
     Active Substance: PROPOFOL
     Indication: GENERAL ANAESTHESIA
     Dosage: 150 MILLIGRAM
  10. FENTANYL. [Interacting]
     Active Substance: FENTANYL
     Indication: INDUCTION OF ANAESTHESIA
     Dosage: 100 MICROGRAM
  11. REMIFENTANIL [Interacting]
     Active Substance: REMIFENTANIL
     Indication: MAINTENANCE OF ANAESTHESIA
     Dosage: 0.15 ?G/KG/MIN WITH MAINTENANCE OF BIS BETWEEN 38-46
  12. PROPOFOL. [Interacting]
     Active Substance: PROPOFOL
     Indication: INDUCTION OF ANAESTHESIA
     Dosage: 15 MILLIGRAM

REACTIONS (3)
  - Drug interaction [Recovered/Resolved]
  - Respiratory acidosis [Unknown]
  - Neuromuscular block prolonged [Recovered/Resolved]
